FAERS Safety Report 25001789 (Version 1)
Quarter: 2025Q1

REPORT INFORMATION
  Report Type: Report from Study
  Country: US (occurrence: US)
  Receive Date: 20250224
  Receipt Date: 20250224
  Transmission Date: 20250409
  Serious: Yes (Other)
  Sender: JOHNSON AND JOHNSON
  Company Number: US-JNJFOC-20250250896

PATIENT
  Age: 64 Year
  Sex: Female

DRUGS (2)
  1. SPRAVATO [Suspect]
     Active Substance: ESKETAMINE
     Indication: Major depression
     Dosage: ^84 MG, 41 TOTAL DOSES^
     Route: 045
     Dates: start: 20240506, end: 20250217
  2. SPRAVATO [Suspect]
     Active Substance: ESKETAMINE
     Indication: Suicidal ideation
     Route: 045
     Dates: start: 20240503, end: 20240503

REACTIONS (3)
  - Suicidal ideation [Not Recovered/Not Resolved]
  - Fatigue [Not Recovered/Not Resolved]
  - Drug ineffective [Not Recovered/Not Resolved]

NARRATIVE: CASE EVENT DATE: 20250210
